FAERS Safety Report 18571641 (Version 2)
Quarter: 2021Q1

REPORT INFORMATION
  Report Type: Spontaneous
  Country: JP (occurrence: JP)
  Receive Date: 20201202
  Receipt Date: 20210323
  Transmission Date: 20210419
  Serious: Yes (Other)
  Sender: FDA-Public Use
  Company Number: JP-ASTRAZENECA-2020SF23000

PATIENT
  Age: 24589 Day
  Sex: Male
  Weight: 66 kg

DRUGS (4)
  1. FORXIGA [Suspect]
     Active Substance: DAPAGLIFLOZIN
     Indication: TYPE 2 DIABETES MELLITUS
     Route: 048
     Dates: start: 20180522
  2. GEMCITABINE. [Concomitant]
     Active Substance: GEMCITABINE
     Dates: start: 2020
  3. CISPLATIN. [Concomitant]
     Active Substance: CISPLATIN
     Dates: start: 2020
  4. PITAVASTATIN CALCIUM [Concomitant]
     Active Substance: PITAVASTATIN CALCIUM
     Indication: TYPE 2 DIABETES MELLITUS
     Route: 048
     Dates: start: 20180411

REACTIONS (2)
  - Bladder mass [Not Recovered/Not Resolved]
  - Malaise [Unknown]

NARRATIVE: CASE EVENT DATE: 20200803
